FAERS Safety Report 6436714-1 (Version None)
Quarter: 2009Q4

REPORT INFORMATION
  Report Type: 
  Country: None (occurrence: None)
  Receive Date: 20091111
  Receipt Date: 20091106
  Transmission Date: 20100525
  Serious: Yes (Congenital Anomaly)
  Sender: FDA-Public Use
  Company Number: US-B.I. PHARMACEUTICALS,INC./RIDGEFIELD-2009-BP-12944BP

PATIENT

DRUGS (3)
  1. VIRAMUNE [Suspect]
     Indication: HIV INFECTION
     Dosage: 400 MG
     Route: 064
     Dates: start: 20090628, end: 20090712
  2. COMBIVIR [Suspect]
     Indication: HIV INFECTION
     Route: 064
     Dates: start: 20090628
  3. KALETRA [Suspect]
     Indication: HIV INFECTION
     Route: 064
     Dates: start: 20090720

REACTIONS (1)
  - ADRENAL CYST [None]
